FAERS Safety Report 19768331 (Version 1)
Quarter: 2021Q3

REPORT INFORMATION
  Report Type: Report from Study
  Country: US (occurrence: US)
  Receive Date: 20210830
  Receipt Date: 20210830
  Transmission Date: 20211014
  Serious: Yes (Other)
  Sender: FDA-Public Use
  Company Number: US-HORIZON THERAPEUTICS-HZN-2021-004186

PATIENT

DRUGS (1)
  1. TEPEZZA [Suspect]
     Active Substance: TEPROTUMUMAB-TRBW
     Indication: ENDOCRINE OPHTHALMOPATHY
     Dosage: 1ST INFUSION
     Route: 065
     Dates: start: 20210701

REACTIONS (3)
  - Headache [Unknown]
  - Anaphylactic reaction [Unknown]
  - Infusion related reaction [Unknown]
